FAERS Safety Report 19283626 (Version 1)
Quarter: 2021Q2

REPORT INFORMATION
  Report Type: Spontaneous
  Country: US (occurrence: US)
  Receive Date: 20210521
  Receipt Date: 20210521
  Transmission Date: 20210717
  Serious: No
  Sender: FDA-Public Use
  Company Number: US-ASTRAZENECA-2021A357307

PATIENT

DRUGS (1)
  1. FASENRA [Suspect]
     Active Substance: BENRALIZUMAB
     Route: 058

REACTIONS (8)
  - Exposure during pregnancy [Unknown]
  - Dermatitis contact [Unknown]
  - Weight decreased [Unknown]
  - COVID-19 [Unknown]
  - Respiratory disorder [Unknown]
  - Sensitive skin [Unknown]
  - Hypersensitivity [Unknown]
  - Weight increased [Unknown]
